FAERS Safety Report 5166635-6 (Version None)
Quarter: 2006Q4

REPORT INFORMATION
  Report Type: 
  Country: None (occurrence: None)
  Receive Date: 20061129
  Receipt Date: 20061129
  Transmission Date: 20070319
  Serious: No
  Sender: FDA-Public Use
  Company Number: None

PATIENT
  Age: 68 Year
  Sex: Female

DRUGS (9)
  1. MACRODANTIN [Suspect]
     Dates: start: 20010801, end: 20050503
  2. IMITREX [Concomitant]
  3. FOSAMAX [Concomitant]
  4. PLAVIX [Concomitant]
  5. MOBIC [Concomitant]
  6. ATARAX [Concomitant]
  7. PREMARIN [Concomitant]
  8. VERAPAMIL [Concomitant]
  9. CALCIUM WITH VITAMIN D [Concomitant]

REACTIONS (10)
  - ASTHENIA [None]
  - AUTOIMMUNE DISORDER [None]
  - CONDITION AGGRAVATED [None]
  - DISEASE RECURRENCE [None]
  - FATIGUE [None]
  - HEPATIC TRAUMA [None]
  - HEPATITIS [None]
  - HEPATITIS CHRONIC ACTIVE [None]
  - NAUSEA [None]
  - URINARY TRACT INFECTION [None]
